FAERS Safety Report 4618241-7 (Version None)
Quarter: 2005Q1

REPORT INFORMATION
  Report Type: 
  Country: None (occurrence: None)
  Receive Date: 20050323
  Receipt Date: 20050308
  Transmission Date: 20050727
  Serious: Yes (Other)
  Sender: FDA-Public Use
  Company Number: B0301013A

PATIENT
  Age: 53 Year
  Sex: Female
  Weight: 71.8498 kg

DRUGS (5)
  1. EPIVIR-HBV [Suspect]
     Indication: HEPATITIS B
     Dosage: ORAL
     Route: 048
     Dates: start: 20030326, end: 20030507
  2. CEFTAZIDIME SODIUM [Concomitant]
  3. UNASYN [Concomitant]
  4. CEFTAZIDIME SODIUM [Concomitant]
  5. UNASYN [Concomitant]

REACTIONS (3)
  - HEPATOTOXICITY [None]
  - LIVER TRANSPLANT [None]
  - LIVER TRANSPLANT REJECTION [None]
